FAERS Safety Report 25132426 (Version 1)
Quarter: 2025Q1

REPORT INFORMATION
  Report Type: Report from Study
  Country: IN (occurrence: IN)
  Receive Date: 20250328
  Receipt Date: 20250328
  Transmission Date: 20250409
  Serious: Yes (Other)
  Sender: CIPLA
  Company Number: IN-CIPLA LTD.-2025IN03440

PATIENT

DRUGS (6)
  1. SPIRONOLACTONE\TORSEMIDE [Suspect]
     Active Substance: SPIRONOLACTONE\TORSEMIDE
     Indication: Fluid retention
     Route: 048
     Dates: start: 20250311
  2. METOPROLOL SUCCINATE [Suspect]
     Active Substance: METOPROLOL SUCCINATE
     Indication: Blood pressure abnormal
     Route: 048
     Dates: start: 20250311
  3. SACUBITRIL\VALSARTAN [Suspect]
     Active Substance: SACUBITRIL\VALSARTAN
     Indication: Cardiac failure
     Route: 048
     Dates: start: 20250311
  4. ECOSPRIN GOLD [Concomitant]
     Indication: Product used for unknown indication
     Route: 065
  5. RANCAD [Concomitant]
     Indication: Product used for unknown indication
     Route: 065
  6. ROSUMAC ASP [Concomitant]
     Indication: Product used for unknown indication
     Route: 065

REACTIONS (2)
  - Hepatic infection [Not Recovered/Not Resolved]
  - Kidney enlargement [Not Recovered/Not Resolved]
